FAERS Safety Report 7790454-5 (Version None)
Quarter: 2011Q3

REPORT INFORMATION
  Report Type: 
  Country: None (occurrence: None)
  Receive Date: 20110930
  Receipt Date: 20110926
  Transmission Date: 20111222
  Serious: Yes (Other)
  Sender: FDA-Public Use
  Company Number: DE-TEVA-302864GER

PATIENT
  Sex: Male

DRUGS (1)
  1. COPAXONE [Suspect]
     Dates: start: 20000101

REACTIONS (1)
  - KAPOSI'S SARCOMA [None]
